FAERS Safety Report 4811006-2 (Version None)
Quarter: 2005Q4

REPORT INFORMATION
  Report Type: 
  Country: None (occurrence: None)
  Receive Date: 20051025
  Receipt Date: 20051014
  Transmission Date: 20060501
  Serious: Yes (Other)
  Sender: FDA-Public Use
  Company Number: 2005139172

PATIENT
  Age: 55 Year
  Sex: Male
  Weight: 86.1834 kg

DRUGS (4)
  1. LIPITOR [Suspect]
     Indication: ILL-DEFINED DISORDER
     Dosage: 10 MG (10 MG, 1 IN 1 D), ORAL
     Route: 048
     Dates: start: 20020101, end: 20041201
  2. ATENOLOL [Concomitant]
  3. PROMETHAZINE [Concomitant]
  4. ASPIRIN [Concomitant]

REACTIONS (4)
  - ABASIA [None]
  - DIPLEGIA [None]
  - ECONOMIC PROBLEM [None]
  - HYPOKINESIA [None]
